FAERS Safety Report 14551852 (Version 1)
Quarter: 2018Q1

REPORT INFORMATION
  Report Type: Spontaneous
  Country: US (occurrence: US)
  Receive Date: 20180220
  Receipt Date: 20180220
  Transmission Date: 20180509
  Serious: No
  Sender: FDA-Public Use
  Company Number: US-PFIZER INC-2018069016

PATIENT
  Age: 63 Year
  Sex: Female
  Weight: 64 kg

DRUGS (1)
  1. XELJANZ XR [Suspect]
     Active Substance: TOFACITINIB CITRATE
     Indication: RHEUMATOID ARTHRITIS
     Dosage: 11 MG, 1X/DAY (AROUND 12 IN THE NIGHT)
     Route: 048
     Dates: start: 20180206, end: 201802

REACTIONS (12)
  - Heart rate increased [Unknown]
  - Stress [Unknown]
  - Drug intolerance [Unknown]
  - Dry throat [Recovering/Resolving]
  - Gastric disorder [Unknown]
  - Dizziness [Unknown]
  - Throat tightness [Recovering/Resolving]
  - Hypersensitivity [Unknown]
  - Swelling [Unknown]
  - Dry mouth [Unknown]
  - Dyspnoea [Recovering/Resolving]
  - Tremor [Unknown]

NARRATIVE: CASE EVENT DATE: 201802
